FAERS Safety Report 6658111-6 (Version None)
Quarter: 2010Q1

REPORT INFORMATION
  Report Type: 
  Country: None (occurrence: None)
  Receive Date: 20100330
  Receipt Date: 20100318
  Transmission Date: 20100710
  Serious: Yes (Hospitalization)
  Sender: FDA-Public Use
  Company Number: US-ELI_LILLY_AND_COMPANY-US201003005726

PATIENT
  Sex: Male

DRUGS (5)
  1. BYETTA [Suspect]
     Dosage: 10 UG, UNK
  2. SIMVASTATIN [Concomitant]
  3. LISINOPRIL [Concomitant]
  4. ACTOS /SCH/ [Concomitant]
     Dosage: 30 MG, UNK
  5. LANTUS [Concomitant]
     Dosage: 20 U, DAILY (1/D)

REACTIONS (3)
  - OFF LABEL USE [None]
  - PANCREATIC LEAK [None]
  - PANCREATITIS CHRONIC [None]
